FAERS Safety Report 9986844 (Version 1)
Quarter: 2014Q1

REPORT INFORMATION
  Report Type: Report from Study
  Country: US (occurrence: US)
  Receive Date: 20140307
  Receipt Date: 20140307
  Transmission Date: 20141002
  Serious: No
  Sender: FDA-Public Use
  Company Number: US-ABBVIE-13P-163-1081310-00

PATIENT
  Age: 66 Year
  Sex: Female

DRUGS (17)
  1. HUMIRA [Suspect]
     Indication: PSORIATIC ARTHROPATHY
     Route: 058
     Dates: start: 20130423
  2. METHOTREXATE [Concomitant]
     Indication: PSORIATIC ARTHROPATHY
     Dosage: WEEKLY
     Route: 048
  3. FOLIC ACID [Concomitant]
     Indication: PSORIATIC ARTHROPATHY
     Route: 048
  4. DIOVAN [Concomitant]
     Indication: TACHYCARDIA
     Route: 048
  5. FLEXERIL [Concomitant]
     Indication: INTERVERTEBRAL DISC DEGENERATION
     Route: 048
  6. GABAPENTIN [Concomitant]
     Indication: RELAXATION THERAPY
     Dosage: AT BEDTIME
  7. LIPITOR [Concomitant]
     Indication: BLOOD CHOLESTEROL
     Route: 048
  8. VERAPAMIL [Concomitant]
     Indication: CARDIAC DISORDER
     Route: 048
  9. SOMA [Concomitant]
     Indication: BACK DISORDER
     Dosage: AT BEDTIME
     Route: 048
  10. SOMA [Concomitant]
     Indication: MUSCLE RELAXANT THERAPY
  11. LEXAPRO [Concomitant]
     Indication: DEPRESSION
  12. LANSOPRAZOLE [Concomitant]
     Indication: GASTRITIS PROPHYLAXIS
     Dosage: AT BEDTIME
     Route: 048
  13. QVAR [Concomitant]
     Indication: ASTHMA
     Dosage: INHALER, 2 PUFFS IN AM AND 2 PUFFS IN PM
  14. PROAIR [Concomitant]
     Indication: ASTHMA
     Dosage: OR AS NEEDED; INHALER
  15. FLUTICASONE PROPIONATE [Concomitant]
     Indication: ASTHMA
     Dosage: IN AM AND PM
  16. IPRATROPIUM BROMIDE [Concomitant]
     Indication: ASTHMA
     Dosage: OR AS NEEDED
     Route: 045
  17. VITAMINS [Concomitant]
     Indication: VITAMIN SUPPLEMENTATION
     Route: 048

REACTIONS (1)
  - Injection site pain [Recovered/Resolved]
